FAERS Safety Report 19693599 (Version 1)
Quarter: 2021Q3

REPORT INFORMATION
  Report Type: Spontaneous
  Country: US (occurrence: US)
  Receive Date: 20210812
  Receipt Date: 20210812
  Transmission Date: 20211014
  Serious: No
  Sender: FDA-Public Use
  Company Number: US-ASTRAZENECA-2021A630542

PATIENT
  Age: 759 Month
  Sex: Female
  Weight: 53.5 kg

DRUGS (1)
  1. IMFINZI [Suspect]
     Active Substance: DURVALUMAB
     Indication: PANCOAST^S TUMOUR
     Route: 042
     Dates: start: 20201102

REACTIONS (5)
  - Hyperthyroidism [Recovering/Resolving]
  - Psoriasis [Recovering/Resolving]
  - Dyspnoea [Not Recovered/Not Resolved]
  - Gastrooesophageal reflux disease [Not Recovered/Not Resolved]
  - Fatigue [Recovering/Resolving]

NARRATIVE: CASE EVENT DATE: 202102
